FAERS Safety Report 12217896 (Version 1)
Quarter: 2016Q1

REPORT INFORMATION
  Report Type: Spontaneous
  Country: GB (occurrence: GB)
  Receive Date: 20160329
  Receipt Date: 20160329
  Transmission Date: 20160526
  Serious: Yes (Other)
  Sender: FDA-Public Use
  Company Number: GB-PFIZER INC-2016174082

PATIENT
  Age: 72 Year
  Sex: Male
  Weight: 90 kg

DRUGS (6)
  1. DORZOLAMIDE [Concomitant]
     Active Substance: DORZOLAMIDE
     Dosage: 1 GTT, 3X/DAY LEFT EYE ONLY
     Route: 047
  2. NAPROXEN. [Concomitant]
     Active Substance: NAPROXEN
     Dosage: 250 MG, 1X/DAY AFTER FOOD IN THE MORNING
  3. DOXYCYCLINE MONOHYDRATE [Suspect]
     Active Substance: DOXYCYCLINE
     Indication: MALARIA PROPHYLAXIS
     Dosage: 50 MG, 1X/DAY
     Route: 048
     Dates: start: 20160216, end: 20160224
  4. COD LIVER OIL [Concomitant]
     Active Substance: COD LIVER OIL
     Dosage: 1 G, 1X/DAY IN THE MORNING.
  5. GINKGO BILOBA EXTRACT [Concomitant]
     Active Substance: GINKGO
     Dosage: 6 G, 1X/DAY STANDARDISED EXTRACT
  6. TAMSULOSINE [Concomitant]
     Active Substance: TAMSULOSIN HYDROCHLORIDE
     Dosage: 400 UG, 1X/DAY IN THE MORNING. MODIFIED RELEASE

REACTIONS (2)
  - Nightmare [Recovered/Resolved]
  - Daydreaming [Recovered/Resolved]

NARRATIVE: CASE EVENT DATE: 20160217
